FAERS Safety Report 9790559 (Version 2)
Quarter: 2014Q1

REPORT INFORMATION
  Report Type: Report from Study
  Country: JP (occurrence: JP)
  Receive Date: 20131231
  Receipt Date: 20140130
  Transmission Date: 20141002
  Serious: Yes (Death)
  Sender: FDA-Public Use
  Company Number: JP-EISAI-201306990

PATIENT
  Age: 98 Year
  Sex: Female
  Weight: 43 kg

DRUGS (4)
  1. LUNESTA [Suspect]
     Indication: INSOMNIA
     Route: 048
     Dates: start: 20130614, end: 20130620
  2. SERMION                            /00396401/ [Concomitant]
     Indication: CEREBRAL INFARCTION
     Dates: end: 20130718
  3. PLETAAL [Concomitant]
     Indication: CEREBRAL INFARCTION
     Dates: start: 20130627, end: 20130718
  4. LUPRAC [Concomitant]
     Indication: CARDIAC FAILURE
     Dates: start: 20130619, end: 20130718

REACTIONS (2)
  - Cerebral infarction [Fatal]
  - Pneumonia [Fatal]
